FAERS Safety Report 8070975-0 (Version None)
Quarter: 2011Q4

REPORT INFORMATION
  Report Type: 
  Country: None (occurrence: None)
  Receive Date: 20111221
  Receipt Date: 20110920
  Transmission Date: 20120403
  Serious: Yes (Other)
  Sender: FDA-Public Use
  Company Number: PHEH2011US04678

PATIENT
  Age: 17 Year
  Sex: Female

DRUGS (1)
  1. EXJADE [Suspect]
     Indication: IRON OVERLOAD
     Dosage: 500 MG, ON MANDAY AND TUESDAY AND 1000 MG FROM FRIADAY  T SUNDAY, ORAL
     Route: 048

REACTIONS (1)
  - NEUTROPHIL COUNT DECREASED [None]
